FAERS Safety Report 17089010 (Version 6)
Quarter: 2020Q1

REPORT INFORMATION
  Report Type: Spontaneous
  Country: JP (occurrence: JP)
  Receive Date: 20191128
  Receipt Date: 20200217
  Transmission Date: 20200409
  Serious: Yes (Death, Hospitalization, Other)
  Sender: FDA-Public Use
  Company Number: JP-009507513-1911JPN002655J

PATIENT
  Age: 59 Year
  Sex: Male
  Weight: 86 kg

DRUGS (13)
  1. PEMETREXED DISODIUM [Suspect]
     Active Substance: PEMETREXED DISODIUM
     Indication: NON-SMALL CELL LUNG CANCER
     Dosage: 1068.5 MILLIGRAM, Q3W
     Route: 041
     Dates: start: 20190926, end: 20191107
  2. CARBOCISTEINE [Concomitant]
     Active Substance: CARBOCYSTEINE
     Indication: BRONCHITIS
     Dosage: 250 MILLIGRAM, TID
     Route: 048
     Dates: start: 20190813, end: 20191122
  3. CISPLATIN. [Suspect]
     Active Substance: CISPLATIN
     Indication: NON-SMALL CELL LUNG CANCER
     Dosage: 160 MILLIGRAM, Q3W
     Route: 041
     Dates: start: 20190926, end: 20191107
  4. SULPIRIDE [Concomitant]
     Active Substance: SULPIRIDE
     Dosage: 100 MILLIGRAM, QD
     Route: 048
     Dates: start: 20191011
  5. REBAMIPIDE [Concomitant]
     Active Substance: REBAMIPIDE
     Indication: CHRONIC GASTRITIS
     Dosage: 100 MILLIGRAM, TID
     Route: 048
     Dates: start: 20190910, end: 20191122
  6. BROTIZOLAM [Concomitant]
     Active Substance: BROTIZOLAM
     Indication: INSOMNIA
     Dosage: 0.25 MILLIGRAM, PRN
     Route: 048
     Dates: start: 20190917, end: 20191122
  7. KEYTRUDA [Suspect]
     Active Substance: PEMBROLIZUMAB
     Indication: NON-SMALL CELL LUNG CANCER
     Dosage: 200 MILLIGRAM, Q3W
     Route: 041
     Dates: start: 20190926, end: 20191107
  8. TAKECAB [Suspect]
     Active Substance: VONOPRAZAN FUMURATE
     Indication: GASTROOESOPHAGEAL REFLUX DISEASE
     Dosage: 20 MILLIGRAM, QD
     Route: 048
     Dates: start: 20190914, end: 20191122
  9. LOXOPROFEN NA [Concomitant]
     Active Substance: LOXOPROFEN SODIUM
     Indication: CANCER PAIN
     Dosage: 60 MILLIGRAM, TID
     Route: 048
     Dates: start: 20190802, end: 20191122
  10. ETIZOLAM [Concomitant]
     Active Substance: ETIZOLAM
     Indication: NEUROSIS
     Dosage: 0.5 MILLIGRAM, TID
     Route: 048
     Dates: start: 20190730, end: 20191122
  11. OXYCODONE [Concomitant]
     Active Substance: OXYCODONE
     Indication: CANCER PAIN
     Dosage: 20 MILLIGRAM, BID
     Route: 048
     Dates: start: 20190910, end: 20191112
  12. SYMPROIC [Concomitant]
     Active Substance: NALDEMEDINE
     Indication: CONSTIPATION
     Dosage: 0.2 MILLIGRAM, QD
     Route: 048
     Dates: start: 20190910, end: 20191122
  13. MAGMITT [Concomitant]
     Active Substance: MAGNESIUM OXIDE
     Indication: CONSTIPATION
     Dosage: 330 MILLIGRAM, TID
     Route: 048
     Dates: start: 20190925, end: 20191122

REACTIONS (12)
  - Aplastic anaemia [Unknown]
  - Diarrhoea [Recovered/Resolved]
  - Colitis [Unknown]
  - Nausea [Unknown]
  - Gastrointestinal hypomotility [Unknown]
  - Infection [Fatal]
  - Pancytopenia [Fatal]
  - Gastrointestinal wall thickening [Unknown]
  - Haemophagocytic lymphohistiocytosis [Fatal]
  - Septic shock [Fatal]
  - Thrombotic microangiopathy [Unknown]
  - Depression [Unknown]

NARRATIVE: CASE EVENT DATE: 2019
